FAERS Safety Report 8261072-X (Version None)
Quarter: 2012Q2

REPORT INFORMATION
  Report Type: 
  Country: None (occurrence: None)
  Receive Date: 20120402
  Receipt Date: 20110509
  Transmission Date: 20120825
  Serious: Yes (Other)
  Sender: FDA-Public Use
  Company Number: GGEL20110500590

PATIENT
  Sex: Female
  Weight: 82 kg

DRUGS (5)
  1. DOMPERIDONE (DOMPERIDONE) (DOMPERIDONE) [Concomitant]
  2. TOPIRAMATE [Suspect]
     Dosage: 100 MILLIGRAM, 2 IN 1 D, ORAL USE
     Route: 048
     Dates: start: 20110308, end: 20110414
  3. MAXALT (RIZATRIPTAN BENZOATE) (RIZATRIPTAN BENZOATE) [Concomitant]
  4. IMIGRAN (SUMATRIPTAN, SUMATRIPTAN SUCCINATE) (SUMATRIPTAN, SUMATRIPTAN [Concomitant]
  5. SUMATRIPTAN SUCCINATE [Concomitant]

REACTIONS (4)
  - AMNESIA [None]
  - CONFUSIONAL STATE [None]
  - PARAESTHESIA [None]
  - CEREBROVASCULAR ACCIDENT [None]
